FAERS Safety Report 20650165 (Version 2)
Quarter: 2022Q2

REPORT INFORMATION
  Report Type: Spontaneous
  Country: US (occurrence: US)
  Receive Date: 20220329
  Receipt Date: 20220609
  Transmission Date: 20220721
  Serious: No
  Sender: FDA-Public Use
  Company Number: US-AVEO ONCOLOGY-2022-AVEO-US000047

PATIENT

DRUGS (18)
  1. FOTIVDA [Suspect]
     Active Substance: TIVOZANIB HYDROCHLORIDE
     Indication: Renal cell carcinoma
     Dosage: 0.89 MG, DAILY FOR 21 DAYS AND 7 DAYS OFF
     Route: 048
     Dates: start: 20220121
  2. ALLEGRA ALLERGY [Concomitant]
     Active Substance: FEXOFENADINE HYDROCHLORIDE
  3. ALLOPURINOL [Concomitant]
     Active Substance: ALLOPURINOL
  4. ARTIFICIAL TEARS [Concomitant]
     Active Substance: GLYCERIN\HYPROMELLOSES\POLYETHYLENE GLYCOL 400
  5. ATORVASTATIN [Concomitant]
     Active Substance: ATORVASTATIN
  6. CARDIZEM [Concomitant]
     Active Substance: DILTIAZEM HYDROCHLORIDE
  7. VITAMINS [Concomitant]
     Active Substance: VITAMINS
  8. CREON [Concomitant]
     Active Substance: PANCRELIPASE AMYLASE\PANCRELIPASE LIPASE\PANCRELIPASE PROTEASE
  9. FAMOTIDINE [Concomitant]
     Active Substance: FAMOTIDINE
  10. FLOMAX [Concomitant]
     Active Substance: TAMSULOSIN HYDROCHLORIDE
  11. IPRATROPIUM BROMIDE [Concomitant]
     Active Substance: IPRATROPIUM BROMIDE
  12. ISOSORBIDE DINITRATE [Concomitant]
     Active Substance: ISOSORBIDE DINITRATE
  13. LASIX [Concomitant]
     Active Substance: FUROSEMIDE
  14. LORAZEPAM [Concomitant]
     Active Substance: LORAZEPAM
  15. SYNTHROID [Concomitant]
     Active Substance: LEVOTHYROXINE SODIUM
  16. MINERALS\VITAMINS [Concomitant]
     Active Substance: MINERALS\VITAMINS
  17. TRIAMCINOLONE [Concomitant]
     Active Substance: TRIAMCINOLONE
  18. LOPERAMIDE [Concomitant]
     Active Substance: LOPERAMIDE

REACTIONS (2)
  - Nausea [Recovering/Resolving]
  - Diarrhoea [Recovering/Resolving]

NARRATIVE: CASE EVENT DATE: 20220210
